FAERS Safety Report 9832648 (Version 2)
Quarter: 2014Q1

REPORT INFORMATION
  Report Type: Spontaneous
  Country: FR (occurrence: FR)
  Receive Date: 20140121
  Receipt Date: 20140122
  Transmission Date: 20141002
  Serious: Yes (Death, Hospitalization)
  Sender: FDA-Public Use
  Company Number: FR-B.I. PHARMACEUTICALS,INC./RIDGEFIELD-2014-BI-02381FF

PATIENT
  Age: 90 Year
  Sex: Female

DRUGS (5)
  1. PRADAXA [Suspect]
     Indication: ATRIAL FIBRILLATION
     Dosage: 220 MG
     Route: 048
     Dates: start: 2013
  2. BISOPROLOL 10 [Concomitant]
  3. LEVOTHYROX 25 [Concomitant]
  4. TRIATEC 5 [Concomitant]
  5. FUROSEMIDE 40 [Concomitant]

REACTIONS (4)
  - Shock haemorrhagic [Fatal]
  - Traumatic haematoma [Fatal]
  - Melaena [Fatal]
  - Haemorrhagic anaemia [Fatal]
